FAERS Safety Report 11812976 (Version 4)
Quarter: 2016Q4

REPORT INFORMATION
  Report Type: Report from Study
  Country: US (occurrence: US)
  Receive Date: 20151209
  Receipt Date: 20161010
  Transmission Date: 20170206
  Serious: Yes (Other)
  Sender: FDA-Public Use
  Company Number: US-UCBSA-2015039153

PATIENT
  Age: 46 Year
  Sex: Male

DRUGS (1)
  1. CERTOLIZUMAB PEGOL [Suspect]
     Active Substance: CERTOLIZUMAB PEGOL
     Indication: CROHN^S DISEASE
     Dosage: 400 MG, EV 4 WEEKS (EXP DATE: 31-MAR-2017), NDC NO: 50474-700-62, EXPIRY DATE: MAR-2017
     Dates: start: 20100803

REACTIONS (4)
  - Injection site swelling [Unknown]
  - Malaise [Not Recovered/Not Resolved]
  - Hepatitis [Not Recovered/Not Resolved]
  - Diarrhoea [Unknown]

NARRATIVE: CASE EVENT DATE: 20160705
